FAERS Safety Report 11870518 (Version 1)
Quarter: 2015Q4

REPORT INFORMATION
  Report Type: Spontaneous
  Country: US (occurrence: US)
  Receive Date: 20151228
  Receipt Date: 20151228
  Transmission Date: 20160305
  Serious: Yes (Other)
  Sender: FDA-Public Use
  Company Number: US-SA-2015SA107794

PATIENT
  Age: 84 Year
  Sex: Male

DRUGS (1)
  1. PLAVIX [Suspect]
     Active Substance: CLOPIDOGREL BISULFATE
     Indication: PERIPHERAL ARTERIAL OCCLUSIVE DISEASE
     Dosage: FREQUENCY: EVERY 4-5 DAYS
     Route: 048
     Dates: start: 2007

REACTIONS (3)
  - Medication residue present [Unknown]
  - Haemorrhagic diathesis [Unknown]
  - Blood disorder [Unknown]

NARRATIVE: CASE EVENT DATE: 20150710
